FAERS Safety Report 23320410 (Version 11)
Quarter: 2024Q4

REPORT INFORMATION
  Report Type: Spontaneous
  Country: US (occurrence: US)
  Receive Date: 20231220
  Receipt Date: 20241230
  Transmission Date: 20250115
  Serious: Yes (Hospitalization, Other)
  Sender: PFIZER
  Company Number: US-PFIZER INC-PV202300118843

PATIENT
  Age: 76 Year
  Sex: Female
  Weight: 78.47 kg

DRUGS (7)
  1. IBRANCE [Suspect]
     Active Substance: PALBOCICLIB
     Indication: Breast cancer metastatic
     Dosage: 125 MG, CYCLIC (AT THE SAME TIME DAILY ON DAYS 1-21 OF EACH 28 DAY CYCLE, SWALLOW WHOLE)
     Route: 048
     Dates: start: 202306
  2. IBRANCE [Suspect]
     Active Substance: PALBOCICLIB
     Indication: Bone cancer
     Dosage: 100 MG, CYCLIC (AT THE SAME TIME DAILY ON DAYS 1-21 OF EACH 28 DAY CYCLE. SWALLOW WHOLE.)
     Route: 048
     Dates: start: 20231108, end: 20231208
  3. IBRANCE [Suspect]
     Active Substance: PALBOCICLIB
     Dosage: 100 MG, CYCLIC (ONCE A DAY)
  4. IBRANCE [Suspect]
     Active Substance: PALBOCICLIB
     Dosage: 75 MG, CYCLIC (DAILY, TAKE AT THE SAME TIME DAILY ON DAYS 1-21 OF EACH 28 DAY CYCLE. SWALLOW WHOLE.)
     Route: 048
  5. IBRANCE [Suspect]
     Active Substance: PALBOCICLIB
     Dosage: TAKE AT THE SAME TIME DAILY ON DAYS 1-21 OF EACH 28 DAY CYCLE. 1 TABLET. SWALLOW WHOLE
     Route: 048
  6. BREZTRI [Concomitant]
     Active Substance: BUDESONIDE\FORMOTEROL\GLYCOPYRROLATE
     Dosage: INHALER
  7. TRELEGY ELLIPTA [Concomitant]
     Active Substance: FLUTICASONE FUROATE\UMECLIDINIUM BROMIDE\VILANTEROL TRIFENATATE
     Dosage: UNK
     Dates: start: 202401

REACTIONS (7)
  - Dyspnoea [Unknown]
  - Oxygen saturation decreased [Unknown]
  - Chronic obstructive pulmonary disease [Recovered/Resolved]
  - Emphysema [Unknown]
  - Pulmonary embolism [Unknown]
  - Pneumonia [Unknown]
  - Granulocyte count decreased [Unknown]

NARRATIVE: CASE EVENT DATE: 20230101
